FAERS Safety Report 7122451-7 (Version None)
Quarter: 2010Q4

REPORT INFORMATION
  Report Type: 
  Country: None (occurrence: None)
  Receive Date: 20101124
  Receipt Date: 20101117
  Transmission Date: 20110411
  Serious: Yes (Hospitalization)
  Sender: FDA-Public Use
  Company Number: CG-MERCK-1011USA02265

PATIENT
  Age: 44 Year
  Sex: Male

DRUGS (1)
  1. STROMECTOL [Suspect]
     Indication: ONCHOCERCIASIS
     Route: 048
     Dates: start: 20100926, end: 20100926

REACTIONS (3)
  - HEADACHE [None]
  - MUSCULOSKELETAL DISORDER [None]
  - OCULAR HYPERAEMIA [None]
